FAERS Safety Report 15840055 (Version 3)
Quarter: 2023Q4

REPORT INFORMATION
  Report Type: Report from Study
  Country: FR (occurrence: FR)
  Receive Date: 20190117
  Receipt Date: 20231026
  Transmission Date: 20240109
  Serious: Yes (Death, Hospitalization, Other)
  Sender: FDA-Public Use
  Company Number: FR-JAZZ-2019-FR-000732

PATIENT
  Age: 70 Year
  Sex: Male
  Weight: 52 kg

DRUGS (3)
  1. DEFITELIO [Suspect]
     Active Substance: DEFIBROTIDE SODIUM
     Indication: Prophylaxis
     Dosage: 25 MILLIGRAM/KILOGRAM
     Route: 042
     Dates: start: 20150612, end: 20150708
  2. URSODIOL [Concomitant]
     Active Substance: URSODIOL
     Indication: Prophylaxis
  3. ZOVIRAX [Concomitant]
     Active Substance: ACYCLOVIR
     Indication: Oral herpes
     Dosage: UNK
     Dates: start: 20150612, end: 20150702

REACTIONS (5)
  - Cutaneous T-cell lymphoma recurrent [Fatal]
  - Septic shock [Fatal]
  - Pseudomonas infection [Unknown]
  - Klebsiella infection [Unknown]
  - Off label use [Unknown]

NARRATIVE: CASE EVENT DATE: 20150612
